FAERS Safety Report 9607899 (Version 2)
Quarter: 2013Q4

REPORT INFORMATION
  Report Type: Spontaneous
  Country: US (occurrence: US)
  Receive Date: 20131009
  Receipt Date: 20131118
  Transmission Date: 20140711
  Serious: No
  Sender: FDA-Public Use
  Company Number: US-TEVA-436959USA

PATIENT
  Age: 10 Year
  Sex: 0

DRUGS (1)
  1. FLOVENT [Suspect]
     Dosage: 220 MICROGRAM DAILY; 2 PUFFS BID

REACTIONS (1)
  - Weight increased [Unknown]
